FAERS Safety Report 24981637 (Version 1)
Quarter: 2025Q1

REPORT INFORMATION
  Report Type: Spontaneous
  Country: US (occurrence: None)
  Receive Date: 20250217
  Receipt Date: 20250217
  Transmission Date: 20250408
  Serious: No
  Sender: FDA-CTU
  Company Number: None

PATIENT
  Age: 46 Year
  Sex: Female
  Weight: 94.95 kg

DRUGS (26)
  1. REPATHA [Suspect]
     Active Substance: EVOLOCUMAB
     Indication: Low density lipoprotein increased
     Dosage: OTHER QUANTITY : 2 INJECTION(S);?OTHER FREQUENCY : EVERY 14 DAYS;?
     Route: 058
  2. XOPENEX [Concomitant]
     Active Substance: LEVALBUTEROL HYDROCHLORIDE
  3. OMEPRAZOLE [Concomitant]
     Active Substance: OMEPRAZOLE
  4. SUCRALFATE [Concomitant]
     Active Substance: SUCRALFATE
  5. VITAMIN A [Concomitant]
     Active Substance: VITAMIN A
  6. VITAMIN C [Concomitant]
     Active Substance: ASCORBIC ACID
  7. VITAMIN D [Concomitant]
     Active Substance: VITAMIN D NOS
  8. VITAMIN E [Concomitant]
     Active Substance: .ALPHA.-TOCOPHEROL
  9. VITAMIN K [Concomitant]
     Active Substance: PHYTONADIONE
  10. COENZYME Q10 [Concomitant]
     Active Substance: DIETARY SUPPLEMENT\UBIDECARENONE
  11. FOLIC ACID [Concomitant]
     Active Substance: FOLIC ACID
  12. GARLIC [Concomitant]
     Active Substance: GARLIC
  13. DIETARY SUPPLEMENT [Concomitant]
     Active Substance: DIETARY SUPPLEMENT
  14. ZEAXANTHIN [Concomitant]
     Active Substance: ZEAXANTHIN
  15. LUTEIN [Concomitant]
     Active Substance: LUTEIN
  16. ARGININE [Concomitant]
     Active Substance: ARGININE
  17. NAC [Concomitant]
  18. BIOTIN [Concomitant]
     Active Substance: BIOTIN
  19. PRASTERONE [Concomitant]
     Active Substance: PRASTERONE
  20. MAGNESIUM GLYCINATE [Concomitant]
     Active Substance: MAGNESIUM GLYCINATE
  21. PQQ [Concomitant]
  22. IRON [Concomitant]
     Active Substance: IRON
  23. 5-HTP [Concomitant]
  24. TYLENOL [Concomitant]
     Active Substance: ACETAMINOPHEN
  25. IBUPROFEN [Concomitant]
     Active Substance: IBUPROFEN
  26. UNSPECIFIED INGREDIENT [Concomitant]
     Active Substance: UNSPECIFIED INGREDIENT

REACTIONS (7)
  - Insomnia [None]
  - Headache [None]
  - Oropharyngeal pain [None]
  - Rhinorrhoea [None]
  - Photosensitivity reaction [None]
  - Blood pressure increased [None]
  - Blood glucose increased [None]

NARRATIVE: CASE EVENT DATE: 20250217
